FAERS Safety Report 24690872 (Version 3)
Quarter: 2024Q4

REPORT INFORMATION
  Report Type: Spontaneous
  Country: DE (occurrence: DE)
  Receive Date: 20241203
  Receipt Date: 20241218
  Transmission Date: 20250114
  Serious: Yes (Life-Threatening, Hospitalization, Other)
  Sender: TORRENT PHARMA INC.
  Company Number: None

PATIENT
  Age: 8 Year
  Sex: Male

DRUGS (2)
  1. DEFERASIROX [Suspect]
     Active Substance: DEFERASIROX
     Indication: Chelation therapy
     Dosage: 360 MG/DAY (18.9 MG/KG) DAILY
     Route: 065
  2. DIMENHYDRINATE [Concomitant]
     Active Substance: DIMENHYDRINATE
     Indication: Serum ferritin increased
     Route: 048

REACTIONS (16)
  - Acute hepatic failure [Recovered/Resolved]
  - Toxicity to various agents [Unknown]
  - Gastrointestinal infection [Recovered/Resolved]
  - Pyrexia [Unknown]
  - Vomiting [Unknown]
  - Condition aggravated [Unknown]
  - General physical health deterioration [Unknown]
  - Cyanosis [Unknown]
  - Somnolence [Unknown]
  - Hypothermia [Unknown]
  - Hypertonia [Unknown]
  - Muscle spasms [Unknown]
  - Hyperammonaemia [Recovering/Resolving]
  - Thrombocytopenia [Unknown]
  - Rhinovirus infection [Unknown]
  - Drug abuse [Unknown]

NARRATIVE: CASE EVENT DATE: 20231001
